FAERS Safety Report 16554798 (Version 1)
Quarter: 2019Q3

REPORT INFORMATION
  Report Type: Spontaneous
  Country: US (occurrence: US)
  Receive Date: 20190710
  Receipt Date: 20190710
  Transmission Date: 20191004
  Serious: No
  Sender: FDA-Public Use
  Company Number: US-ACTELION-A-NJ2019-192572

PATIENT
  Sex: Female
  Weight: 114.29 kg

DRUGS (4)
  1. UPTRAVI [Suspect]
     Active Substance: SELEXIPAG
     Indication: PULMONARY ARTERIAL HYPERTENSION
     Dosage: 200 MCG, BID
     Route: 048
  2. LETAIRIS [Concomitant]
     Active Substance: AMBRISENTAN
  3. COUMADIN [Concomitant]
     Active Substance: WARFARIN SODIUM
  4. ADCIRCA [Concomitant]
     Active Substance: TADALAFIL

REACTIONS (8)
  - Asthenopia [Unknown]
  - Headache [Unknown]
  - Dyspepsia [Unknown]
  - Malaise [Unknown]
  - Sensitivity to weather change [Unknown]
  - Diarrhoea [Unknown]
  - Eructation [Unknown]
  - Nausea [Unknown]
